FAERS Safety Report 5069616-6 (Version None)
Quarter: 2006Q3

REPORT INFORMATION
  Report Type: 
  Country: None (occurrence: None)
  Receive Date: 20060803
  Receipt Date: 20060724
  Transmission Date: 20061208
  Serious: Yes (Death, Hospitalization)
  Sender: FDA-Public Use
  Company Number: US-AMGEN-US187688

PATIENT
  Sex: Female

DRUGS (2)
  1. ENBREL [Suspect]
     Indication: RHEUMATOID ARTHRITIS
     Route: 058
     Dates: start: 20000501, end: 20060201
  2. METHOTREXATE [Concomitant]
     Route: 065
     Dates: start: 19990101

REACTIONS (2)
  - DYSPNOEA [None]
  - PNEUMONIA [None]
